FAERS Safety Report 7847099-8 (Version None)
Quarter: 2011Q4

REPORT INFORMATION
  Report Type: 
  Country: None (occurrence: None)
  Receive Date: 20111025
  Receipt Date: 20111017
  Transmission Date: 20120403
  Serious: Yes (Hospitalization)
  Sender: FDA-Public Use
  Company Number: DE-MERCK-1105DEU00133

PATIENT
  Age: 87 Year
  Sex: Female
  Weight: 54 kg

DRUGS (9)
  1. JANUVIA [Suspect]
     Route: 048
     Dates: start: 20110401
  2. HYDROCHLOROTHIAZIDE AND TELMISARTAN [Concomitant]
     Indication: HYPERTENSION
     Route: 048
  3. JANUVIA [Suspect]
     Indication: TYPE 2 DIABETES MELLITUS
     Route: 048
     Dates: start: 20110301, end: 20110401
  4. TORSEMIDE [Concomitant]
     Indication: HYPERTENSION
     Route: 048
  5. PHENPROCOUMON [Suspect]
     Indication: ATRIAL FIBRILLATION
     Route: 048
     Dates: end: 20110401
  6. CARVEDILOL [Concomitant]
     Indication: CORONARY ARTERY DISEASE
     Route: 048
  7. SIMVASTATIN [Concomitant]
     Indication: HYPERLIPIDAEMIA
     Route: 048
  8. CALCIUM (UNSPECIFIED) AND CHOLECALCIFEROL [Concomitant]
     Indication: OSTEOPOROSIS
     Route: 048
  9. GLIMEPIRIDE [Concomitant]
     Indication: DIABETES MELLITUS
     Route: 048

REACTIONS (8)
  - FALL [None]
  - INTERNATIONAL NORMALISED RATIO INCREASED [None]
  - OVERDOSE [None]
  - DRUG INTERACTION [None]
  - HAEMORRHAGIC ANAEMIA [None]
  - HAEMORRHAGE [None]
  - PROTHROMBIN TIME PROLONGED [None]
  - HAEMOTHORAX [None]
